FAERS Safety Report 10033572 (Version 1)
Quarter: 2014Q1

REPORT INFORMATION
  Report Type: Spontaneous
  Country: US (occurrence: US)
  Receive Date: 20140325
  Receipt Date: 20140325
  Transmission Date: 20141002
  Serious: No
  Sender: FDA-Public Use
  Company Number: US-BIOGENIDEC-2014BI026926

PATIENT
  Sex: Female

DRUGS (2)
  1. AVONEX [Suspect]
     Indication: MULTIPLE SCLEROSIS
     Route: 030
  2. AVONEX [Suspect]
     Indication: MULTIPLE SCLEROSIS
     Route: 030
     Dates: start: 1998

REACTIONS (5)
  - Multiple sclerosis [Recovered/Resolved]
  - Cognitive disorder [Unknown]
  - Abdominal discomfort [Not Recovered/Not Resolved]
  - Injection site granuloma [Recovered/Resolved]
  - Fatigue [Not Recovered/Not Resolved]
